FAERS Safety Report 6174593-0 (Version None)
Quarter: 2009Q2

REPORT INFORMATION
  Report Type: 
  Country: None (occurrence: None)
  Receive Date: 20090430
  Receipt Date: 20080807
  Transmission Date: 20091009
  Serious: No
  Sender: FDA-Public Use
  Company Number: US-ASTRAZENECA-2008UW16322

PATIENT
  Sex: Male
  Weight: 77.1 kg

DRUGS (12)
  1. NEXIUM [Suspect]
     Indication: GASTROOESOPHAGEAL REFLUX DISEASE
     Route: 048
  2. ASPIRIN [Concomitant]
  3. PLAVIX [Concomitant]
  4. LASIX [Concomitant]
  5. LISINOPRIL [Concomitant]
     Route: 048
  6. METOPROLOL TARTRATE [Concomitant]
     Route: 048
  7. ZOCOR [Concomitant]
  8. ALBUTEROL [Concomitant]
  9. FLOVENT [Concomitant]
  10. MAGNESIUM SUPPLEMENT [Concomitant]
  11. LOVAZA [Concomitant]
  12. MULTI-VITAMIN [Concomitant]

REACTIONS (2)
  - ABDOMINAL DISTENSION [None]
  - INFREQUENT BOWEL MOVEMENTS [None]
